FAERS Safety Report 9380637 (Version 1)
Quarter: 2013Q2

REPORT INFORMATION
  Report Type: Spontaneous
  Country: US (occurrence: None)
  Receive Date: 20130628
  Receipt Date: 20130628
  Transmission Date: 20140414
  Serious: Yes (Other)
  Sender: FDA-Public Use
  Company Number: AXC-2013-000273

PATIENT
  Sex: Female

DRUGS (7)
  1. BENTYL [Suspect]
     Indication: DYSPEPSIA
     Route: 048
  2. MAALOX ANTACID WITH ANTI-GAS [Suspect]
     Dosage: 2 OR 3 TIMES DAILY
     Route: 048
     Dates: start: 1995
  3. MYLANTA /0003670/ (ALUMINIUM HYDROXIDE GEL, DRIED, MAGNESIUM HYDROXIDE, SIMETICONE) TABLET [Concomitant]
  4. VALIUM /00017001 (DIAZEPAM) [Concomitant]
  5. VITAMIN C [Concomitant]
  6. VITAMIN D /00318501 (COLECALCIFEROL) [Concomitant]
  7. CALCIUM (CALCIUM) [Concomitant]

REACTIONS (14)
  - Depression [None]
  - Activities of daily living impaired [None]
  - Burnout syndrome [None]
  - Asthenia [None]
  - Headache [None]
  - Dysuria [None]
  - Abdominal pain lower [None]
  - Weight decreased [None]
  - Gastritis [None]
  - Abdominal pain upper [None]
  - Pancreatic duct dilatation [None]
  - Biliary dilatation [None]
  - Oesophagitis [None]
  - Chest pain [None]
